FAERS Safety Report 16454156 (Version 1)
Quarter: 2019Q2

REPORT INFORMATION
  Report Type: Spontaneous
  Country: US (occurrence: US)
  Receive Date: 20190619
  Receipt Date: 20190619
  Transmission Date: 20190711
  Serious: No
  Sender: FDA-Public Use
  Company Number: US-TEVA-2019-US-1055712

PATIENT
  Age: 66 Year
  Sex: Female

DRUGS (3)
  1. IPRATROPIUM [Concomitant]
     Active Substance: IPRATROPIUM
     Indication: RESPIRATORY DISTRESS
     Dosage: NEBULISED SOLUTION
  2. ALBUTEROL. [Concomitant]
     Active Substance: ALBUTEROL
     Indication: RESPIRATORY DISTRESS
     Dosage: NEBULISED SOLUTION
  3. DEXAMETHASONE. [Suspect]
     Active Substance: DEXAMETHASONE
     Indication: RESPIRATORY DISTRESS
     Route: 042

REACTIONS (2)
  - Tachycardia [Recovered/Resolved]
  - Genital burning sensation [Recovered/Resolved]
